FAERS Safety Report 8460793-3 (Version None)
Quarter: 2012Q2

REPORT INFORMATION
  Report Type: 
  Country: None (occurrence: None)
  Receive Date: 20120623
  Receipt Date: 20120611
  Transmission Date: 20120825
  Serious: Yes (Death)
  Sender: FDA-Public Use
  Company Number: GB-TEVA-342693ISR

PATIENT
  Age: 82 Year
  Sex: Female

DRUGS (1)
  1. WARFARIN SODIUM [Suspect]
     Indication: POST PROCEDURAL PULMONARY EMBOLISM
     Route: 065

REACTIONS (3)
  - SKIN NECROSIS [None]
  - MULTI-ORGAN FAILURE [None]
  - SEPSIS [None]
